FAERS Safety Report 15097292 (Version 4)
Quarter: 2018Q4

REPORT INFORMATION
  Report Type: Report from Study
  Country: US (occurrence: US)
  Receive Date: 20180702
  Receipt Date: 20181002
  Transmission Date: 20190204
  Serious: Yes (Life-Threatening, Hospitalization)
  Sender: FDA-Public Use
  Company Number: US-LUNDBECK-DKLU2050597

PATIENT
  Age: 7 Month
  Sex: Female
  Weight: 8 kg

DRUGS (2)
  1. SABRIL [Suspect]
     Active Substance: VIGABATRIN
     Indication: TUBEROUS SCLEROSIS COMPLEX
     Route: 048
     Dates: start: 20180212
  2. SABRIL [Suspect]
     Active Substance: VIGABATRIN
     Indication: SEIZURE
     Route: 048
     Dates: start: 20180212

REACTIONS (11)
  - Adverse drug reaction [Unknown]
  - Rash papular [Recovered/Resolved]
  - Otitis externa [Unknown]
  - Pyrexia [Unknown]
  - Apnoeic attack [Recovered/Resolved]
  - Status epilepticus [Recovered/Resolved]
  - Insomnia [Unknown]
  - Vomiting [Unknown]
  - Respiratory failure [Recovered/Resolved]
  - Seizure [Not Recovered/Not Resolved]
  - Dyspnoea [Unknown]

NARRATIVE: CASE EVENT DATE: 201806
